FAERS Safety Report 12469212 (Version 1)
Quarter: 2016Q2

REPORT INFORMATION
  Report Type: Report from Study
  Country: IL (occurrence: IL)
  Receive Date: 20160615
  Receipt Date: 20160615
  Transmission Date: 20160815
  Serious: Yes (Hospitalization)
  Sender: FDA-Public Use
  Company Number: IL-ABBVIE-15K-082-1328829-00

PATIENT
  Age: 20 Year
  Sex: Female
  Weight: 67.7 kg

DRUGS (7)
  1. HUMIRA [Suspect]
     Active Substance: ADALIMUMAB
     Route: 058
     Dates: start: 20150210
  2. IMURAN [Concomitant]
     Active Substance: AZATHIOPRINE
     Indication: AUTOIMMUNE HEPATITIS
     Dates: start: 20130120, end: 20131001
  3. ACAMOL [Concomitant]
     Active Substance: ACETAMINOPHEN
     Indication: MIGRAINE
  4. HUMIRA [Suspect]
     Active Substance: ADALIMUMAB
     Indication: CROHN^S DISEASE
     Route: 058
     Dates: start: 20141120
  5. LANSOPRAZOLE. [Concomitant]
     Active Substance: LANSOPRAZOLE
     Indication: PRODUCT USED FOR UNKNOWN INDICATION
     Route: 048
  6. IMURAN [Concomitant]
     Active Substance: AZATHIOPRINE
     Indication: CROHN^S DISEASE
     Dates: start: 20150122
  7. OPTALGIN [Concomitant]
     Active Substance: METAMIZOLE
     Indication: MIGRAINE

REACTIONS (27)
  - Dizziness [Recovering/Resolving]
  - Blood sodium decreased [Unknown]
  - Ureterolithiasis [Recovered/Resolved]
  - Pyrexia [Recovered/Resolved]
  - Ileal ulcer [Unknown]
  - Blood lactate dehydrogenase increased [Unknown]
  - Haemoglobin decreased [Unknown]
  - Laboratory test abnormal [Unknown]
  - Colitis [Unknown]
  - White blood cell count increased [Unknown]
  - Renal colic [Unknown]
  - Chills [Unknown]
  - Stenosis [Unknown]
  - Haematocrit decreased [Unknown]
  - Nausea [Unknown]
  - Urinoma [Not Recovered/Not Resolved]
  - Blood urea decreased [Unknown]
  - Blood glucose increased [Unknown]
  - Neutrophil count increased [Unknown]
  - Lymphocyte count decreased [Unknown]
  - Gamma-glutamyltransferase increased [Unknown]
  - Abdominal pain lower [Unknown]
  - Eosinophil count decreased [Unknown]
  - Neutrophil count decreased [Unknown]
  - Pain [Unknown]
  - Abdominal pain [Recovered/Resolved]
  - Vomiting [Unknown]

NARRATIVE: CASE EVENT DATE: 201412
